FAERS Safety Report 8998075 (Version 1)
Quarter: 2013Q1

REPORT INFORMATION
  Report Type: Spontaneous
  Country: GB (occurrence: GB)
  Receive Date: 20130104
  Receipt Date: 20130104
  Transmission Date: 20140127
  Serious: Yes (Hospitalization)
  Sender: FDA-Public Use
  Company Number: GB-BAUSCH-BL-2013-000016

PATIENT
  Age: 64 Year
  Sex: Male

DRUGS (16)
  1. PREDNISOLONE [Suspect]
     Indication: DIFFUSE LARGE B-CELL LYMPHOMA
     Dosage: 1/ 1DAYS
     Dates: start: 20090922
  2. PREDNISOLONE [Suspect]
     Dates: start: 20090929
  3. BEVACIZUMAB [Suspect]
     Indication: DIFFUSE LARGE B-CELL LYMPHOMA
     Dates: start: 20090929
  4. ENOXAPARIN SODIUM [Suspect]
     Indication: PRODUCT USED FOR UNKNOWN INDICATION
     Dosage: 1 /1DAYS
     Dates: start: 20091019
  5. CYCLOPHOSPHAMIDE [Suspect]
     Indication: DIFFUSE LARGE B-CELL LYMPHOMA
     Dates: start: 20090929
  6. DOXORUBICIN [Suspect]
     Indication: DIFFUSE LARGE B-CELL LYMPHOMA
     Dates: start: 20090929
  7. RITUXIMAB [Suspect]
     Indication: DIFFUSE LARGE B-CELL LYMPHOMA
     Dates: start: 20090929
  8. VINCRISTINE [Suspect]
     Indication: DIFFUSE LARGE B-CELL LYMPHOMA
     Dates: start: 20090920
  9. NO DRUG NAME [Concomitant]
     Dosage: 1/ 1DAYS
     Dates: start: 20090922
  10. NO DRUG NAME [Concomitant]
  11. NO DRUG NAME [Concomitant]
     Indication: MOUTH ULCERATION
     Dosage: 1 /1DAYS
     Dates: start: 20091016
  12. NO DRUG NAME [Concomitant]
  13. NO DRUG NAME [Concomitant]
     Dosage: 1 /1DAYS
  14. NO DRUG NAME [Concomitant]
     Dosage: 2/ 1DAYS
  15. NO DRUG NAME [Concomitant]
     Indication: CONSTIPATION
     Dosage: 1/ 1DAYS
     Dates: start: 20091016
  16. NO DRUG NAME [Concomitant]
     Dosage: 1/ 1DAYS
     Dates: start: 20090923

REACTIONS (1)
  - Epistaxis [Recovered/Resolved]
